FAERS Safety Report 24999371 (Version 2)
Quarter: 2025Q2

REPORT INFORMATION
  Report Type: Spontaneous
  Country: US (occurrence: US)
  Receive Date: 20250222
  Receipt Date: 20250520
  Transmission Date: 20250717
  Serious: No
  Sender: SANOFI AVENTIS
  Company Number: US-SA-2025SA043523

PATIENT
  Age: 66 Year
  Sex: Female

DRUGS (2)
  1. DUPIXENT [Suspect]
     Active Substance: DUPILUMAB
     Indication: Asthma
     Dosage: 300 MG, QOW
     Route: 058
  2. AMLODIPINE MESYLATE [Concomitant]
     Active Substance: AMLODIPINE MESYLATE

REACTIONS (3)
  - Injection site rash [Unknown]
  - Cough [Unknown]
  - Oedema peripheral [Unknown]
